FAERS Safety Report 10599197 (Version 1)
Quarter: 2014Q4

REPORT INFORMATION
  Report Type: Spontaneous
  Country: US (occurrence: US)
  Receive Date: 20141121
  Receipt Date: 20141121
  Transmission Date: 20150529
  Serious: Yes (Other)
  Sender: FDA-Public Use
  Company Number: PHEH2014US022906

PATIENT
  Sex: Female

DRUGS (1)
  1. EXELON PATCH [Suspect]
     Active Substance: RIVASTIGMINE
     Indication: PRODUCT USED FOR UNKNOWN INDICATION
     Dosage: 9.5 MG, UNK
     Route: 062

REACTIONS (13)
  - Application site pain [Unknown]
  - Insomnia [Unknown]
  - Limb injury [Unknown]
  - Eye injury [Unknown]
  - Dementia [Unknown]
  - Dizziness [Unknown]
  - Rash [Unknown]
  - Fall [Unknown]
  - Pollakiuria [Unknown]
  - Memory impairment [Unknown]
  - Pruritus [Unknown]
  - Multiple fractures [Unknown]
  - Joint injury [Unknown]
